FAERS Safety Report 8382064-6 (Version None)
Quarter: 2012Q2

REPORT INFORMATION
  Report Type: 
  Country: None (occurrence: None)
  Receive Date: 20120522
  Receipt Date: 20120508
  Transmission Date: 20120825
  Serious: Yes (Other)
  Sender: FDA-Public Use
  Company Number: 2012AP001388

PATIENT
  Age: 70 Year
  Sex: Female

DRUGS (3)
  1. LATANOPROST [Concomitant]
  2. DORZOLAMIDE HCL AND TIMOLOL MALEATE [Suspect]
     Indication: GLAUCOMA
     Dosage: 1 GTT; EYE_DRSOL;OPH;QD
     Route: 047
     Dates: start: 20110901
  3. CLONAZEPAM [Concomitant]

REACTIONS (3)
  - EYE IRRITATION [None]
  - RETINAL VASCULAR OCCLUSION [None]
  - EYE SWELLING [None]
